FAERS Safety Report 5071972-X (Version None)
Quarter: 2006Q3

REPORT INFORMATION
  Report Type: 
  Country: None (occurrence: None)
  Receive Date: 20060714
  Receipt Date: 20060601
  Transmission Date: 20061208
  Serious: No
  Sender: FDA-Public Use
  Company Number: 2006SP002279

PATIENT
  Age: 42 Year
  Sex: Female
  Weight: 104.3273 kg

DRUGS (12)
  1. LUNESTA [Suspect]
     Indication: INSOMNIA
     Dosage: SEE IMAGE
     Route: 048
     Dates: start: 20060501, end: 20060501
  2. LUNESTA [Suspect]
     Indication: INSOMNIA
     Dosage: SEE IMAGE
     Route: 048
     Dates: start: 20060528, end: 20060530
  3. TOPROL-XL [Concomitant]
  4. AVALIDE [Concomitant]
  5. OXYCODONE HCL [Concomitant]
  6. SINGULAIR [Concomitant]
  7. SYNTHROID [Concomitant]
  8. GLUCOPHAGE [Concomitant]
  9. NEXIUM [Concomitant]
  10. VERAPAMIL [Concomitant]
  11. VASOTEC [Concomitant]
  12. VALIUM [Concomitant]

REACTIONS (7)
  - DIARRHOEA [None]
  - DIZZINESS [None]
  - DYSGEUSIA [None]
  - INSOMNIA [None]
  - LETHARGY [None]
  - NAUSEA [None]
  - VOMITING [None]
